FAERS Safety Report 7509634-9 (Version None)
Quarter: 2011Q2

REPORT INFORMATION
  Report Type: 
  Country: None (occurrence: None)
  Receive Date: 20110527
  Receipt Date: 20110523
  Transmission Date: 20111010
  Serious: Yes (Hospitalization)
  Sender: FDA-Public Use
  Company Number: US-US-EMD SERONO, INC.-232397J10USA

PATIENT
  Sex: Female

DRUGS (2)
  1. REBIF [Suspect]
     Indication: MULTIPLE SCLEROSIS
     Route: 058
     Dates: start: 19940101
  2. REBIF [Suspect]
     Route: 058
     Dates: start: 20030905

REACTIONS (3)
  - MULTIPLE SCLEROSIS RELAPSE [None]
  - BLADDER DISORDER [None]
  - URINARY TRACT INFECTION [None]
